FAERS Safety Report 7035576-1 (Version None)
Quarter: 2010Q4

REPORT INFORMATION
  Report Type: 
  Country: None (occurrence: None)
  Receive Date: 20101008
  Receipt Date: 20100928
  Transmission Date: 20110411
  Serious: Yes (Other)
  Sender: FDA-Public Use
  Company Number: DE-PFIZER INC-2010083374

PATIENT
  Age: 25 Year
  Sex: Male
  Weight: 88 kg

DRUGS (1)
  1. VIAGRA [Suspect]
     Indication: ERECTILE DYSFUNCTION
     Dosage: 3 X 100 MG, AS NEEDED
     Route: 048
     Dates: start: 20050101, end: 20100401

REACTIONS (16)
  - ALANINE AMINOTRANSFERASE INCREASED [None]
  - ANTINUCLEAR ANTIBODY INCREASED [None]
  - BLOOD CREATINE PHOSPHOKINASE INCREASED [None]
  - BLOOD CREATINE PHOSPHOKINASE MB INCREASED [None]
  - CARDIAC DISORDER [None]
  - EPSTEIN-BARR VIRUS ANTIBODY [None]
  - HEADACHE [None]
  - HEPATIC STEATOSIS [None]
  - HEPATITIS A [None]
  - HEPATITIS B ANTIBODY [None]
  - HOT FLUSH [None]
  - HYPERLIPIDAEMIA [None]
  - INTENTIONAL DRUG MISUSE [None]
  - TRANSAMINASES INCREASED [None]
  - VISUAL IMPAIRMENT [None]
  - WEIGHT INCREASED [None]
